FAERS Safety Report 22140892 (Version 2)
Quarter: 2023Q2

REPORT INFORMATION
  Report Type: Spontaneous
  Country: US (occurrence: US)
  Receive Date: 20230327
  Receipt Date: 20230414
  Transmission Date: 20230721
  Serious: Yes (Other)
  Sender: FDA-Public Use
  Company Number: US-PFIZER INC-202300122069

PATIENT
  Age: 14 Year
  Sex: Male
  Weight: 44.7 kg

DRUGS (1)
  1. GENOTROPIN [Suspect]
     Active Substance: SOMATROPIN
     Indication: Growth hormone deficiency
     Dosage: 1.9 MG, DAILY
     Dates: start: 20230126, end: 20230311

REACTIONS (4)
  - Psychotic disorder [Recovered/Resolved]
  - Middle insomnia [Recovered/Resolved]
  - Nightmare [Recovered/Resolved]
  - Anxiety [Not Recovered/Not Resolved]

NARRATIVE: CASE EVENT DATE: 20230101
